FAERS Safety Report 7079817-3 (Version None)
Quarter: 2010Q4

REPORT INFORMATION
  Report Type: 
  Country: None (occurrence: None)
  Receive Date: 20101102
  Receipt Date: 20101027
  Transmission Date: 20110411
  Serious: Yes (Hospitalization)
  Sender: FDA-Public Use
  Company Number: US-AMGEN-USASP2010002094

PATIENT

DRUGS (1)
  1. ENBREL [Suspect]
     Indication: PSORIASIS
     Dates: start: 20090603, end: 20100601

REACTIONS (3)
  - DYSPNOEA [None]
  - FALL [None]
  - MUSCULOSKELETAL CHEST PAIN [None]
